FAERS Safety Report 7309350-2 (Version None)
Quarter: 2011Q1

REPORT INFORMATION
  Report Type: 
  Country: None (occurrence: None)
  Receive Date: 20110223
  Receipt Date: 20110217
  Transmission Date: 20110831
  Serious: Yes (Death)
  Sender: FDA-Public Use
  Company Number: US-GENZYME-CLOF-1001450

PATIENT
  Age: 27 Year
  Sex: Male

DRUGS (6)
  1. FLUDARA [Suspect]
     Indication: BONE MARROW CONDITIONING REGIMEN
     Dosage: 30 MG/M2, QDX5 (DAYS -7, -6, -3, -4, -3)
     Route: 042
  2. MYCOPHENOLATE [Concomitant]
     Indication: IMMUNOSUPPRESSION
     Dosage: UNK, FROM DAY -3 TO DAY +28
     Route: 065
  3. CLOLAR [Suspect]
     Indication: ACUTE MYELOID LEUKAEMIA
     Dosage: 40 MG/M2, QDX5
     Route: 042
  4. TACROLIMUS [Concomitant]
     Indication: IMMUNOSUPPRESSION
     Dosage: UNK, FROM DAY -1 TO DAY +180
     Route: 065
  5. THYMOGLOBULIN [Suspect]
     Indication: BONE MARROW CONDITIONING REGIMEN
     Dosage: 1.5 MG/KG, QOD (DAY -7, -5, -3, -1)
     Route: 042
  6. MELPHALAN [Suspect]
     Indication: BONE MARROW CONDITIONING REGIMEN
     Dosage: 70 MG/M2, QD (DAYS -3, -2)
     Route: 042

REACTIONS (1)
  - NEOPLASM MALIGNANT [None]
